FAERS Safety Report 16524221 (Version 1)
Quarter: 2019Q3

REPORT INFORMATION
  Report Type: Report from Study
  Country: US (occurrence: US)
  Receive Date: 20190702
  Receipt Date: 20190702
  Transmission Date: 20191004
  Serious: Yes (Hospitalization)
  Sender: FDA-Public Use
  Company Number: US-ACTELION-A-NJ2018-182768

PATIENT
  Age: 73 Year
  Sex: Male
  Weight: 82.09 kg

DRUGS (5)
  1. OPSUMIT [Concomitant]
     Active Substance: MACITENTAN
  2. ADCIRCA [Concomitant]
     Active Substance: TADALAFIL
  3. VELETRI [Suspect]
     Active Substance: EPOPROSTENOL
     Dosage: UNK
     Route: 042
  4. VELETRI [Suspect]
     Active Substance: EPOPROSTENOL
     Dosage: 20 NG/KG, PER MIN
     Route: 042
  5. VELETRI [Suspect]
     Active Substance: EPOPROSTENOL
     Indication: PULMONARY ARTERIAL HYPERTENSION
     Dosage: 16 NG/KG, PER MIN
     Route: 042

REACTIONS (13)
  - Haemoglobin decreased [Unknown]
  - Pain in jaw [Unknown]
  - Diarrhoea [Unknown]
  - Chest pain [Unknown]
  - Transfusion [Unknown]
  - Fluid overload [Unknown]
  - Catheter site rash [Unknown]
  - Rash [Unknown]
  - Fluid retention [Unknown]
  - Haematochezia [Unknown]
  - Headache [Unknown]
  - Oxygen saturation decreased [Unknown]
  - Pruritus generalised [Unknown]

NARRATIVE: CASE EVENT DATE: 20190618
